FAERS Safety Report 9127309 (Version 1)
Quarter: 2013Q1

REPORT INFORMATION
  Report Type: Spontaneous
  Country: US (occurrence: US)
  Receive Date: 20130228
  Receipt Date: 20130228
  Transmission Date: 20140127
  Serious: No
  Sender: FDA-Public Use
  Company Number: US-GLAXOSMITHKLINE-A0968219A

PATIENT
  Age: 59 Year
  Sex: Female

DRUGS (8)
  1. LAMICTAL [Suspect]
     Indication: EPILEPSY
     Dosage: 200MG TWICE PER DAY
     Route: 048
  2. CITALOPRAM [Concomitant]
  3. ACCOLATE [Concomitant]
  4. LEVOXYL [Concomitant]
  5. TRAZODONE [Concomitant]
  6. ADVAIR [Concomitant]
  7. GAMMA GLOBULIN [Concomitant]
  8. SPIRIVA [Concomitant]

REACTIONS (4)
  - Rash [Unknown]
  - Blister [Unknown]
  - Burning sensation [Unknown]
  - Sleep disorder [Unknown]
